FAERS Safety Report 13448004 (Version 1)
Quarter: 2017Q2

REPORT INFORMATION
  Report Type: Spontaneous
  Country: SE (occurrence: SE)
  Receive Date: 20170417
  Receipt Date: 20170417
  Transmission Date: 20170830
  Serious: Yes (Other)
  Sender: FDA-Public Use
  Company Number: SE-TEVA-757394ACC

PATIENT
  Age: 55 Year
  Sex: Male

DRUGS (4)
  1. PREDNISOLONE. [Concomitant]
     Active Substance: PREDNISOLONE
  2. XIFAXAN [Concomitant]
     Active Substance: RIFAXIMIN
  3. ESOMEPRAZOLE ACTAVIS 40 MG ENTEROTABLETT [Suspect]
     Active Substance: ESOMEPRAZOLE
     Indication: IRRITABLE BOWEL SYNDROME
     Dosage: 80 MILLIGRAM DAILY;
     Dates: start: 20170228, end: 20170308
  4. LESTID [Concomitant]
     Active Substance: COLESTIPOL

REACTIONS (2)
  - Abdominal pain [Recovered/Resolved with Sequelae]
  - Large intestinal haemorrhage [Recovered/Resolved with Sequelae]

NARRATIVE: CASE EVENT DATE: 20170305
